FAERS Safety Report 13042330 (Version 2)
Quarter: 2017Q1

REPORT INFORMATION
  Report Type: Spontaneous
  Country: US (occurrence: US)
  Receive Date: 20161219
  Receipt Date: 20170216
  Transmission Date: 20170428
  Serious: Yes (Death, Hospitalization)
  Sender: FDA-Public Use
  Company Number: US-JNJFOC-20161215668

PATIENT
  Age: 76 Year
  Sex: Male

DRUGS (7)
  1. XARELTO [Suspect]
     Active Substance: RIVAROXABAN
     Indication: THROMBOSIS PROPHYLAXIS
     Dosage: 20 MG DAILY; REDUCED TO 15MG DAILY
     Route: 048
     Dates: start: 20140101, end: 20140828
  2. XARELTO [Suspect]
     Active Substance: RIVAROXABAN
     Indication: ATRIAL FIBRILLATION
     Dosage: 20 MG DAILY; REDUCED TO 15MG DAILY
     Route: 048
     Dates: start: 20140101, end: 20140828
  3. XARELTO [Suspect]
     Active Substance: RIVAROXABAN
     Indication: ATRIAL FIBRILLATION
     Dosage: 20 MG DAILY; REDUCED TO 15MG DAILY
     Route: 048
     Dates: start: 201312
  4. XARELTO [Suspect]
     Active Substance: RIVAROXABAN
     Indication: THROMBOSIS PROPHYLAXIS
     Dosage: 20 MG DAILY; REDUCED TO 15MG DAILY
     Route: 048
     Dates: start: 201312
  5. XARELTO [Suspect]
     Active Substance: RIVAROXABAN
     Indication: CEREBROVASCULAR ACCIDENT PROPHYLAXIS
     Dosage: 20 MG DAILY; REDUCED TO 15MG DAILY
     Route: 048
     Dates: start: 20140101, end: 20140828
  6. ECOTRIN [Suspect]
     Active Substance: ASPIRIN
     Indication: ATRIAL FIBRILLATION
     Route: 048
     Dates: end: 2014
  7. XARELTO [Suspect]
     Active Substance: RIVAROXABAN
     Indication: CEREBROVASCULAR ACCIDENT PROPHYLAXIS
     Dosage: 20 MG DAILY; REDUCED TO 15MG DAILY
     Route: 048
     Dates: start: 201312

REACTIONS (4)
  - Aortic stenosis [Fatal]
  - Chronic kidney disease [Fatal]
  - Small intestinal haemorrhage [Recovering/Resolving]
  - Myelodysplastic syndrome [Fatal]

NARRATIVE: CASE EVENT DATE: 20140828
